FAERS Safety Report 8553917 (Version 3)
Quarter: 2013Q2

REPORT INFORMATION
  Report Type: Report from Study
  Country: US (occurrence: US)
  Receive Date: 20120509
  Receipt Date: 20130529
  Transmission Date: 20140414
  Serious: Yes (Other)
  Sender: FDA-Public Use
  Company Number: US-ROCHE-1067038

PATIENT
  Age: 10 Year
  Sex: Female

DRUGS (5)
  1. BEVACIZUMAB [Suspect]
     Indication: ASTROCYTOMA, LOW GRADE
     Route: 042
  2. BEVACIZUMAB [Suspect]
     Route: 042
  3. IRINOTECAN HYDROCHLORIDE [Suspect]
     Indication: ASTROCYTOMA, LOW GRADE
     Dosage: 125 MG/M2 - 250 MG/M2
     Route: 042
  4. IRINOTECAN HYDROCHLORIDE [Suspect]
     Route: 042
  5. DEXAMETHASONE [Concomitant]
     Route: 065

REACTIONS (1)
  - Osteonecrosis [Not Recovered/Not Resolved]
